FAERS Safety Report 7023851-6 (Version None)
Quarter: 2010Q3

REPORT INFORMATION
  Report Type: 
  Country: None (occurrence: None)
  Receive Date: 20100916
  Receipt Date: 20100616
  Transmission Date: 20110219
  Serious: No
  Sender: FDA-Public Use
  Company Number: DKLU1062630(0)

PATIENT
  Age: 11 Year
  Sex: Female

DRUGS (8)
  1. SABRIL [Suspect]
     Indication: CONVULSION
     Dosage: (500 MG MILLIGRAMS, 2 IN 1 D, ORAL), (500 MG, QAM, ORAL), (250 MG, QPM), (1000 MG, 2 IN 1 D, ORAL)
     Route: 048
     Dates: start: 20100420, end: 20100525
  2. SABRIL [Suspect]
     Indication: CONVULSION
     Dosage: (500 MG MILLIGRAMS, 2 IN 1 D, ORAL), (500 MG, QAM, ORAL), (250 MG, QPM), (1000 MG, 2 IN 1 D, ORAL)
     Route: 048
     Dates: start: 20100301
  3. SABRIL [Suspect]
     Indication: CONVULSION
     Dosage: (500 MG MILLIGRAMS, 2 IN 1 D, ORAL), (500 MG, QAM, ORAL), (250 MG, QPM), (1000 MG, 2 IN 1 D, ORAL)
     Route: 048
     Dates: start: 20100526
  4. SABRIL [Suspect]
     Indication: CONVULSION
     Dosage: (500 MG MILLIGRAMS, 2 IN 1 D, ORAL), (500 MG, QAM, ORAL), (250 MG, QPM), (1000 MG, 2 IN 1 D, ORAL)
     Route: 048
     Dates: start: 20100526
  5. KEFLEX (CEFALEXIN) - CAPSULE [Concomitant]
  6. ERYTHROMYCIN [Concomitant]
  7. PENICILLIN V-K (PHENOXYMETHYLPENICILLIN) [Concomitant]
  8. TOPAMAX [Concomitant]

REACTIONS (8)
  - COLD SWEAT [None]
  - DIARRHOEA [None]
  - FLUSHING [None]
  - MUSCLE CONTRACTIONS INVOLUNTARY [None]
  - POLYDIPSIA [None]
  - PSYCHOMOTOR HYPERACTIVITY [None]
  - THIRST [None]
  - TREMOR [None]
